FAERS Safety Report 7607227-6 (Version None)
Quarter: 2011Q3

REPORT INFORMATION
  Report Type: 
  Country: None (occurrence: None)
  Receive Date: 20110713
  Receipt Date: 20110708
  Transmission Date: 20111222
  Serious: Yes (Other)
  Sender: FDA-Public Use
  Company Number: BR-PFIZER INC-2011155402

PATIENT
  Age: 60 Year
  Sex: Female
  Weight: 47 kg

DRUGS (1)
  1. VARENICLINE TARTRATE [Suspect]
     Indication: TOBACCO USER
     Dosage: 0.5 MG, 1X/DAY
     Route: 048
     Dates: start: 20110628

REACTIONS (2)
  - HYPERSENSITIVITY [None]
  - SKIN DISCOLOURATION [None]
